FAERS Safety Report 12608141 (Version 5)
Quarter: 2017Q1

REPORT INFORMATION
  Report Type: Spontaneous
  Country: US (occurrence: US)
  Receive Date: 20160729
  Receipt Date: 20170104
  Transmission Date: 20170428
  Serious: Yes (Other)
  Sender: FDA-Public Use
  Company Number: US-SA-2016SA136627

PATIENT
  Age: 29 Year
  Sex: Female
  Weight: 122.47 kg

DRUGS (5)
  1. PAXIL [Concomitant]
     Active Substance: PAROXETINE HYDROCHLORIDE
     Indication: ANXIETY
     Dates: start: 2012
  2. ICY HOT MEDICATED SPRAY [Suspect]
     Active Substance: MENTHOL
     Route: 065
     Dates: start: 20160714, end: 20160715
  3. ADVIL [Concomitant]
     Active Substance: IBUPROFEN
     Indication: BACK PAIN
     Dates: start: 2005
  4. ICY HOT MEDICATED SPRAY [Suspect]
     Active Substance: MENTHOL
     Indication: INTERVERTEBRAL DISC DEGENERATION
     Route: 065
     Dates: start: 20160714, end: 20160715
  5. PAXIL [Concomitant]
     Active Substance: PAROXETINE HYDROCHLORIDE
     Indication: DEPRESSION
     Dates: start: 2012

REACTIONS (6)
  - Scar [Unknown]
  - Blister [Not Recovered/Not Resolved]
  - Erythema [Not Recovered/Not Resolved]
  - Rash [Unknown]
  - Burns third degree [Recovered/Resolved with Sequelae]
  - Skin warm [Unknown]

NARRATIVE: CASE EVENT DATE: 2016
